FAERS Safety Report 18203706 (Version 1)
Quarter: 2020Q3

REPORT INFORMATION
  Report Type: Spontaneous
  Country: US (occurrence: US)
  Receive Date: 20200827
  Receipt Date: 20200827
  Transmission Date: 20201103
  Serious: No
  Sender: FDA-Public Use
  Company Number: US-TARO-2020TAR00942

PATIENT

DRUGS (1)
  1. TERBINAFINE HCL CREAM 1% (ATHLETES FOOT) [Suspect]
     Active Substance: TERBINAFINE HYDROCHLORIDE
     Indication: PRODUCT USED FOR UNKNOWN INDICATION
     Dosage: (IN HIS GROIN AREA), UNK
     Route: 061
     Dates: start: 20200501

REACTIONS (2)
  - Vulvovaginal swelling [Unknown]
  - Exposure via partner [Unknown]

NARRATIVE: CASE EVENT DATE: 20200501
